FAERS Safety Report 20714195 (Version 1)
Quarter: 2022Q2

REPORT INFORMATION
  Report Type: Spontaneous
  Country: GB (occurrence: None)
  Receive Date: 20220415
  Receipt Date: 20220415
  Transmission Date: 20220721
  Serious: Yes (Disabling)
  Sender: FDA-Public Use
  Company Number: 2022A143325

PATIENT
  Age: 53 Year
  Sex: Male

DRUGS (1)
  1. DAPAGLIFLOZIN [Suspect]
     Active Substance: DAPAGLIFLOZIN
     Indication: Left ventricular failure
     Dosage: 10MG OD
     Route: 065
     Dates: start: 20220303, end: 20220405

REACTIONS (1)
  - Gangrene [Not Recovered/Not Resolved]

NARRATIVE: CASE EVENT DATE: 20220322
